FAERS Safety Report 5157976-7 (Version None)
Quarter: 2006Q4

REPORT INFORMATION
  Report Type: 
  Country: None (occurrence: None)
  Receive Date: 20061116
  Receipt Date: 20061103
  Transmission Date: 20070319
  Serious: Yes (Hospitalization, Other)
  Sender: FDA-Public Use
  Company Number: 2006114557

PATIENT
  Age: 68 Year
  Sex: Male
  Weight: 72.5755 kg

DRUGS (12)
  1. CHANTIX [Suspect]
     Indication: PERIPHERAL VASCULAR DISORDER
     Dosage: DAILY
     Dates: start: 20060920, end: 20060921
  2. CHANTIX [Suspect]
     Indication: SMOKING CESSATION THERAPY
     Dosage: DAILY
     Dates: start: 20060920, end: 20060921
  3. ATARAX [Suspect]
     Dates: start: 20060101
  4. BIAXIN [Concomitant]
  5. PREVACID [Concomitant]
  6. PLETAL (CILOSTAZOL) [Concomitant]
  7. OXYCODONE HCL [Concomitant]
  8. FUROSEMIDE [Concomitant]
  9. XANAX [Concomitant]
  10. NORCO [Concomitant]
  11. EFFEXOR XR [Concomitant]
  12. AMBIEN [Concomitant]

REACTIONS (10)
  - ASTHENIA [None]
  - CATHETERISATION CARDIAC ABNORMAL [None]
  - CHEST DISCOMFORT [None]
  - CHOKING [None]
  - DIZZINESS [None]
  - MIGRAINE [None]
  - MYOCARDIAL INFARCTION [None]
  - NAUSEA [None]
  - SOMNOLENCE [None]
  - VOMITING [None]
